FAERS Safety Report 5804377-1 (Version None)
Quarter: 2008Q3

REPORT INFORMATION
  Report Type: 
  Country: None (occurrence: None)
  Receive Date: 20080709
  Receipt Date: 20080410
  Transmission Date: 20090109
  Serious: No
  Sender: FDA-Public Use
  Company Number: US-BAYER-200819935NA

PATIENT
  Age: 27 Year
  Sex: Female

DRUGS (1)
  1. MIRENA [Suspect]
     Indication: CONTRACEPTION
     Route: 015
     Dates: start: 20050930, end: 20080409

REACTIONS (5)
  - ABDOMINAL PAIN [None]
  - COITAL BLEEDING [None]
  - HYPOMENORRHOEA [None]
  - MOOD SWINGS [None]
  - PELVIC DISCOMFORT [None]
